FAERS Safety Report 9649495 (Version 3)
Quarter: 2013Q4

REPORT INFORMATION
  Report Type: Spontaneous
  Country: JP (occurrence: JP)
  Receive Date: 20131028
  Receipt Date: 20131111
  Transmission Date: 20140711
  Serious: Yes (Hospitalization, Other)
  Sender: FDA-Public Use
  Company Number: PHHY2013JP120816

PATIENT
  Age: 43 Year
  Sex: Male
  Weight: 78 kg

DRUGS (3)
  1. VALSARTAN [Suspect]
     Indication: HYPERTENSION
     Dosage: 80 MG/ PER DAY
     Route: 048
  2. TRICHLORMETHIAZIDE [Suspect]
     Indication: HYPERTENSION
     Dosage: 1 MG, PER DAY
     Route: 048
  3. CILNIDIPINE [Suspect]
     Indication: HYPERTENSION
     Dosage: 10 MG, PER DAY
     Route: 048

REACTIONS (26)
  - Vertebral artery occlusion [Unknown]
  - Basilar artery occlusion [Unknown]
  - Cerebral circulatory failure [Recovering/Resolving]
  - Brain stem infarction [Unknown]
  - Cerebellar infarction [Unknown]
  - Blood pressure increased [Recovered/Resolved]
  - Glycosylated haemoglobin increased [Unknown]
  - Cerebral infarction [Unknown]
  - Dysarthria [Unknown]
  - Gait disturbance [Recovering/Resolving]
  - Hearing impaired [Unknown]
  - Tinnitus [Recovered/Resolved]
  - Hypoaesthesia oral [Recovered/Resolved]
  - Speech disorder [Unknown]
  - Ataxia [Unknown]
  - Nystagmus [Recovered/Resolved]
  - Vertigo [Recovered/Resolved]
  - Heart rate increased [Unknown]
  - Dyslalia [Unknown]
  - Cerebellar ataxia [Not Recovered/Not Resolved]
  - Left ventricular hypertrophy [Unknown]
  - Deafness [Recovered/Resolved]
  - Hypoaesthesia [Recovered/Resolved]
  - Reperfusion injury [Unknown]
  - Central nervous system lesion [Unknown]
  - Body mass index increased [Unknown]
